FAERS Safety Report 21379968 (Version 1)
Quarter: 2022Q3

REPORT INFORMATION
  Report Type: Spontaneous
  Country: US (occurrence: None)
  Receive Date: 20220923
  Receipt Date: 20220923
  Transmission Date: 20221026
  Serious: Yes (Hospitalization)
  Sender: FDA-Public Use
  Company Number: None

PATIENT
  Age: 78 Year
  Sex: Male

DRUGS (2)
  1. FUROSEMIDE [Suspect]
     Active Substance: FUROSEMIDE
     Indication: Hypertension
     Dosage: 1 TAB BID PO?
     Route: 048
     Dates: start: 20220701, end: 20220710
  2. SACUBITRIL\VALSARTAN [Suspect]
     Active Substance: SACUBITRIL\VALSARTAN
     Indication: Cardiac failure congestive
     Dosage: 1 TAB BID PO?
     Route: 048
     Dates: start: 2022, end: 20220710

REACTIONS (6)
  - Hypotension [None]
  - Dizziness [None]
  - Vision blurred [None]
  - Therapy interrupted [None]
  - Acute kidney injury [None]
  - Therapy change [None]

NARRATIVE: CASE EVENT DATE: 20220710
